FAERS Safety Report 7407333-5 (Version None)
Quarter: 2011Q2

REPORT INFORMATION
  Report Type: 
  Country: None (occurrence: None)
  Receive Date: 20110411
  Receipt Date: 20110330
  Transmission Date: 20111010
  Serious: Yes (Other)
  Sender: FDA-Public Use
  Company Number: PHHY2011US27879

PATIENT
  Sex: Female

DRUGS (4)
  1. TYKERB [Suspect]
     Dosage: 1000 MG, UNK
  2. ESOMEPRAZOLE [Concomitant]
  3. ZOMETA [Suspect]
  4. LAPATINIB [Suspect]
     Dosage: 1000 MG, QD

REACTIONS (4)
  - DYSPEPSIA [None]
  - PALMAR-PLANTAR ERYTHRODYSAESTHESIA SYNDROME [None]
  - HAEMATOCHEZIA [None]
  - FATIGUE [None]
